FAERS Safety Report 7410313-7 (Version None)
Quarter: 2011Q2

REPORT INFORMATION
  Report Type: 
  Country: None (occurrence: None)
  Receive Date: 20110412
  Receipt Date: 20110331
  Transmission Date: 20111010
  Serious: Yes (Hospitalization)
  Sender: FDA-Public Use
  Company Number: PHHY2011US27506

PATIENT
  Sex: Female

DRUGS (3)
  1. METHADONE [Concomitant]
     Dosage: UNK
  2. EXJADE [Suspect]
     Indication: SICKLE CELL ANAEMIA
     Dosage: 1000 MG, QD
     Route: 048
  3. OXYCONTIN [Concomitant]
     Dosage: UNK

REACTIONS (3)
  - DYSPEPSIA [None]
  - CHEST PAIN [None]
  - NAUSEA [None]
